FAERS Safety Report 13399844 (Version 1)
Quarter: 2017Q2

REPORT INFORMATION
  Report Type: Spontaneous
  Country: US (occurrence: US)
  Receive Date: 20170404
  Receipt Date: 20170404
  Transmission Date: 20170830
  Serious: No
  Sender: FDA-Public Use
  Company Number: None

PATIENT
  Age: 70 Year
  Sex: Female

DRUGS (1)
  1. TRESIBA [Suspect]
     Active Substance: INSULIN DEGLUDEC
     Dosage: SOLUTION SQ FLEXTOUCH PEN
     Route: 058

REACTIONS (4)
  - Incorrect dose administered by device [None]
  - Wrong technique in device usage process [None]
  - Blood glucose fluctuation [None]
  - Drug prescribing error [None]
